FAERS Safety Report 11084009 (Version 1)
Quarter: 2015Q2

REPORT INFORMATION
  Report Type: Spontaneous
  Country: US (occurrence: US)
  Receive Date: 20150501
  Receipt Date: 20150501
  Transmission Date: 20150821
  Serious: Yes (Other)
  Sender: FDA-Public Use
  Company Number: US-PFIZER INC-2015141399

PATIENT
  Age: 56 Year
  Sex: Female
  Weight: 44 kg

DRUGS (25)
  1. METHOTREXATE [Concomitant]
     Active Substance: METHOTREXATE
     Indication: RHEUMATOID ARTHRITIS
     Dosage: 2.5 MG, WEEKLY (6 TABLETS ONCE A WEEK)
  2. NORCO [Concomitant]
     Active Substance: ACETAMINOPHEN\HYDROCODONE BITARTRATE
     Indication: PAIN
     Dosage: 10 MG, UNK (EVERY FOUR HOURS)
  3. FLEXERIL [Concomitant]
     Active Substance: CYCLOBENZAPRINE HYDROCHLORIDE
     Indication: MUSCLE RELAXANT THERAPY
     Dosage: 10 MG, UNK (EVERY 8 HOURS)
  4. CRONOLYN [Concomitant]
     Dosage: UNK, 3X/DAY
  5. OXYBUTYNIN CHLORIDE. [Concomitant]
     Active Substance: OXYBUTYNIN CHLORIDE
     Indication: HYPERTONIC BLADDER
     Dosage: 5 MG, 1X/DAY
  6. HYDROXYZINE [Concomitant]
     Active Substance: HYDROXYZINE\HYDROXYZINE HYDROCHLORIDE
     Indication: PRURITUS
     Dosage: 25 MG, 4X/DAY
  7. ESTRADIOL. [Concomitant]
     Active Substance: ESTRADIOL
     Indication: BLOOD OESTROGEN
     Dosage: 1 MG, 1X/DAY
  8. HYDROXYCHLOROQUINE [Concomitant]
     Active Substance: HYDROXYCHLOROQUINE
     Indication: RHEUMATOID ARTHRITIS
     Dosage: 200 MG, 2X/DAY
  9. GABAPENTIN. [Suspect]
     Active Substance: GABAPENTIN
     Indication: RHEUMATOID ARTHRITIS
  10. FORTEO [Concomitant]
     Active Substance: TERIPARATIDE
     Indication: OSTEOPOROSIS
     Dosage: 600 MG, 1X/DAY
  11. FOLIC ACID. [Concomitant]
     Active Substance: FOLIC ACID
     Dosage: 400 MG, 1X/DAY
  12. ACICLOVIR [Concomitant]
     Active Substance: ACYCLOVIR
     Indication: ORAL HERPES
     Dosage: 800 MG, 3X/DAY
  13. MEDROL INJECTION [Concomitant]
     Indication: INTERVERTEBRAL DISC PROTRUSION
     Dosage: UNK
     Dates: start: 2011
  14. CYMBALTA [Suspect]
     Active Substance: DULOXETINE HYDROCHLORIDE
     Indication: FIBROMYALGIA
     Dosage: 60 MG, 2X/DAY
     Route: 048
     Dates: start: 201305
  15. TRAZODONE [Concomitant]
     Active Substance: TRAZODONE HYDROCHLORIDE
     Indication: DEPRESSION
     Dosage: 150 MG, 1X/DAY (SHE HAS TO BREAK IT INTO THREE PIECES TO TAKE IT BECAUSE IT IS SO BIG)
  16. FIBER [Concomitant]
     Active Substance: PSYLLIUM HUSK
     Dosage: UNK
  17. PROMETHAZINE [Concomitant]
     Active Substance: PROMETHAZINE\PROMETHAZINE HYDROCHLORIDE
     Indication: NAUSEA
     Dosage: 25 MG, UNK (SYRINGES WITH CREAM IN THEM RUBS ON HER WRIST)
  18. GABAPENTIN. [Suspect]
     Active Substance: GABAPENTIN
     Indication: OSTEOARTHRITIS
  19. VOLTAREN [Concomitant]
     Active Substance: DICLOFENAC SODIUM
     Indication: ARTHRALGIA
     Dosage: 1 %, DAILY
  20. GABAPENTIN. [Suspect]
     Active Substance: GABAPENTIN
     Indication: FIBROMYALGIA
     Dosage: 600 MG, 3X/DAY
     Dates: start: 2005
  21. SUMATRIPTAN SUCCINATE. [Concomitant]
     Active Substance: SUMATRIPTAN SUCCINATE
     Indication: MIGRAINE
     Dosage: 100 MG, AS NEEDED
  22. TEMAZEPAM. [Concomitant]
     Active Substance: TEMAZEPAM
     Indication: INSOMNIA
     Dosage: 30 MG, UNK (DOES NOT TAKE THEM LIKE SHE IS SUPPOSED TO, DOES NOT TAKE THEM EVERY NIGHT)
  23. ERYHTROMYCIN OINTMENT [Concomitant]
     Indication: ORAL HERPES
     Dosage: UNK, 3X/DAY
  24. KETOCONAZOLE. [Concomitant]
     Active Substance: KETOCONAZOLE
     Indication: RASH
     Dosage: 2 %, UNK (OCCASIONALLY)
  25. TOPIRAMATE. [Concomitant]
     Active Substance: TOPIRAMATE
     Indication: MIGRAINE
     Dosage: 50 MG, 2X/DAY

REACTIONS (28)
  - Loss of consciousness [Unknown]
  - Diverticulitis [Unknown]
  - Anaemia [Not Recovered/Not Resolved]
  - Breast cyst [Unknown]
  - Mobility decreased [Recovered/Resolved]
  - Dry mouth [Not Recovered/Not Resolved]
  - Weight decreased [Not Recovered/Not Resolved]
  - Hypotension [Recovered/Resolved]
  - Vitamin D deficiency [Not Recovered/Not Resolved]
  - Eye disorder [Unknown]
  - Rash generalised [Unknown]
  - Oesophageal disorder [Not Recovered/Not Resolved]
  - Malaise [Not Recovered/Not Resolved]
  - Liver disorder [Unknown]
  - Impaired driving ability [Unknown]
  - Vomiting [Not Recovered/Not Resolved]
  - Tremor [Unknown]
  - Spinal osteoarthritis [Not Recovered/Not Resolved]
  - Osteoporosis [Not Recovered/Not Resolved]
  - Arthralgia [Unknown]
  - Pain [Unknown]
  - Condition aggravated [Unknown]
  - Lung disorder [Unknown]
  - Nausea [Unknown]
  - Corneal disorder [Unknown]
  - Infection [Not Recovered/Not Resolved]
  - Oral herpes [Unknown]
  - Vertigo [Unknown]

NARRATIVE: CASE EVENT DATE: 2011
